FAERS Safety Report 13076902 (Version 1)
Quarter: 2016Q4

REPORT INFORMATION
  Report Type: Spontaneous
  Country: FR (occurrence: FR)
  Receive Date: 20161230
  Receipt Date: 20161230
  Transmission Date: 20170207
  Serious: Yes (Other)
  Sender: FDA-Public Use
  Company Number: FR-PFIZER INC-2016601869

PATIENT
  Age: 22 Year
  Sex: Female
  Weight: 87 kg

DRUGS (4)
  1. ROCURONIUM BROMIDE. [Suspect]
     Active Substance: ROCURONIUM BROMIDE
     Indication: ANAESTHESIA
     Dosage: 50 MG, UNK (0.57 MG.KG -1)
  2. KETAMINE [Concomitant]
     Active Substance: KETAMINE
     Indication: ANAESTHESIA
     Dosage: 20 MG, UNK  (0.23 MG.KG -1)
  3. SUFENTANIL [Concomitant]
     Active Substance: SUFENTANIL
     Indication: ANAESTHESIA
     Dosage: 10 UG, UNK (0.12UG.KG-1)
  4. PROPOFOL. [Concomitant]
     Active Substance: PROPOFOL
     Indication: ANAESTHESIA
     Dosage: 200 MG, UNK  (2.3 MG.KG-1)

REACTIONS (2)
  - Rash [Recovered/Resolved]
  - Anaphylactic shock [Recovered/Resolved]
